FAERS Safety Report 7631691-X (Version None)
Quarter: 2011Q3

REPORT INFORMATION
  Report Type: 
  Country: None (occurrence: None)
  Receive Date: 20110725
  Receipt Date: 20110218
  Transmission Date: 20111222
  Serious: No
  Sender: FDA-Public Use
  Company Number: US-BRISTOL-MYERS SQUIBB COMPANY-15559263

PATIENT
  Sex: Male

DRUGS (3)
  1. COREG [Concomitant]
  2. DIOVAN [Concomitant]
  3. COUMADIN [Suspect]
     Dosage: FOR LONG TIME

REACTIONS (1)
  - PROTHROMBIN TIME ABNORMAL [None]
